FAERS Safety Report 20063059 (Version 1)
Quarter: 2021Q4

REPORT INFORMATION
  Report Type: Spontaneous
  Country: US (occurrence: US)
  Receive Date: 20211112
  Receipt Date: 20211112
  Transmission Date: 20220303
  Serious: Yes (Life-Threatening, Hospitalization)
  Sender: FDA-Public Use
  Company Number: US-GLENMARK PHARMACEUTICALS-2021GMK068730

PATIENT

DRUGS (1)
  1. CARVEDILOL [Suspect]
     Active Substance: CARVEDILOL
     Indication: Product used for unknown indication
     Dosage: 3.125 MILLIGRAM, BID (TWICE DAILY IN THE MORNING AND NIGHT)
     Route: 048

REACTIONS (6)
  - Pain in extremity [Unknown]
  - Back pain [Unknown]
  - Chest pain [Unknown]
  - Dyspnoea [Unknown]
  - Heart rate decreased [Unknown]
  - Palpitations [Unknown]
